FAERS Safety Report 6386096-9 (Version None)
Quarter: 2009Q4

REPORT INFORMATION
  Report Type: 
  Country: None (occurrence: None)
  Receive Date: 20091002
  Receipt Date: 20081231
  Transmission Date: 20100525
  Serious: No
  Sender: FDA-Public Use
  Company Number: US-ASTRAZENECA-2009UW00165

PATIENT
  Age: 58 Year
  Sex: Female
  Weight: 59.9 kg

DRUGS (1)
  1. ARIMIDEX [Suspect]
     Indication: OVARIAN CANCER
     Route: 048
     Dates: start: 20081105

REACTIONS (4)
  - OEDEMA PERIPHERAL [None]
  - PAIN [None]
  - PALPITATIONS [None]
  - PSYCHOMOTOR HYPERACTIVITY [None]
